FAERS Safety Report 9771448 (Version 3)
Quarter: 2014Q1

REPORT INFORMATION
  Report Type: Report from Study
  Country: US (occurrence: US)
  Receive Date: 20131219
  Receipt Date: 20140214
  Transmission Date: 20141002
  Serious: Yes (Hospitalization, Other)
  Sender: FDA-Public Use
  Company Number: US-PFIZER INC-2013346107

PATIENT
  Age: 38 Year
  Sex: Female

DRUGS (15)
  1. TEMSIROLIMUS [Suspect]
     Indication: NON-SMALL CELL LUNG CANCER
     Dosage: 8 MG, WEEKLY
     Route: 042
     Dates: start: 20130924, end: 20130924
  2. NERATINIB [Suspect]
     Indication: NON-SMALL CELL LUNG CANCER
     Dosage: 240 MG, DAILY
     Route: 048
     Dates: start: 20130924
  3. DOCUSATE [Concomitant]
     Dosage: UNK
  4. SENNA [Concomitant]
     Dosage: UNK
  5. MIRALAX [Concomitant]
     Dosage: UNK
  6. LORAZEPAM [Concomitant]
     Dosage: UNK
  7. NASAL SALINE [Concomitant]
     Dosage: UNK
  8. BENZONATATE [Concomitant]
     Dosage: UNK
  9. GUAIFENESIN W/DEXTROMETHORPHAN [Concomitant]
     Dosage: UNK
  10. MORPHINE SULFATE [Concomitant]
     Dosage: UNK
  11. ONDANSETRON [Concomitant]
     Dosage: UNK
  12. PERCOCET [Concomitant]
     Dosage: UNK
  13. ALBUTEROL [Concomitant]
     Dosage: UNK
  14. IPRATROPIUM [Concomitant]
     Dosage: UNK
  15. LOPERAMIDE [Concomitant]
     Indication: DIARRHOEA
     Dosage: UNK
     Dates: start: 20130924

REACTIONS (4)
  - Hyponatraemia [Recovered/Resolved]
  - Hypokalaemia [Recovered/Resolved]
  - Nausea [Recovered/Resolved]
  - Diarrhoea [Recovered/Resolved]
